FAERS Safety Report 18848844 (Version 1)
Quarter: 2021Q1

REPORT INFORMATION
  Report Type: Spontaneous
  Country: CA (occurrence: CA)
  Receive Date: 20210204
  Receipt Date: 20210204
  Transmission Date: 20210419
  Serious: Yes (Hospitalization, Other)
  Sender: FDA-Public Use
  Company Number: CA-BAYER-2021-049719

PATIENT
  Age: 48 Year
  Sex: Male

DRUGS (6)
  1. PREDNISONE. [Suspect]
     Active Substance: PREDNISONE
     Route: 065
  2. IMURAN [Concomitant]
     Active Substance: AZATHIOPRINE
  3. CIPRO [Suspect]
     Active Substance: CIPROFLOXACIN HYDROCHLORIDE
     Dosage: 1 DF, BID
     Route: 065
  4. IMODIUM [Concomitant]
     Active Substance: LOPERAMIDE HYDROCHLORIDE
  5. METRONIDAZOLE. [Suspect]
     Active Substance: METRONIDAZOLE
     Dosage: 1 DF, BID
     Route: 065
  6. INFLIXIMAB [Concomitant]
     Active Substance: INFLIXIMAB
     Indication: COLITIS ULCERATIVE
     Dosage: 500 MG
     Route: 042

REACTIONS (3)
  - Laboratory test abnormal [Unknown]
  - Pouchitis [Unknown]
  - Rectal haemorrhage [Unknown]
